FAERS Safety Report 17620300 (Version 1)
Quarter: 2020Q2

REPORT INFORMATION
  Report Type: Spontaneous
  Country: PT (occurrence: PT)
  Receive Date: 20200403
  Receipt Date: 20200403
  Transmission Date: 20200713
  Serious: Yes (Other)
  Sender: FDA-Public Use
  Company Number: PT-B.I. PHARMACEUTICALS,INC./RIDGEFIELD-2020-12-016300

PATIENT
  Age: 69 Year
  Sex: Male
  Weight: 78.5 kg

DRUGS (1)
  1. SYNJARDY [Suspect]
     Active Substance: EMPAGLIFLOZIN\METFORMIN HYDROCHLORIDE
     Indication: DIABETES MELLITUS
     Dosage: 1 CP, 2X/DIA
     Route: 048
     Dates: start: 20200217, end: 20200315

REACTIONS (1)
  - Urinary tract inflammation [Recovered/Resolved]

NARRATIVE: CASE EVENT DATE: 20200302
